FAERS Safety Report 5671907-2 (Version None)
Quarter: 2008Q1

REPORT INFORMATION
  Report Type: 
  Country: None (occurrence: None)
  Receive Date: 20080319
  Receipt Date: 20080304
  Transmission Date: 20080703
  Serious: Yes (Disabling)
  Sender: FDA-Public Use
  Company Number: CA-BAYER-200813878NA

PATIENT
  Age: 38 Year
  Sex: Male
  Weight: 66 kg

DRUGS (8)
  1. BETASERON [Suspect]
     Indication: MULTIPLE SCLEROSIS
     Dosage: TOTAL DAILY DOSE: 8 MIU
     Route: 058
     Dates: start: 20080125
  2. PARIET [Concomitant]
     Indication: ANTACID THERAPY
     Route: 048
  3. VITAMIN D [Concomitant]
     Route: 048
  4. CALCIUM [Concomitant]
     Route: 048
  5. IRON [Concomitant]
     Route: 048
  6. LIPIDIL [Concomitant]
     Indication: BLOOD CHOLESTEROL INCREASED
     Route: 048
  7. NEURONTIN [Concomitant]
     Indication: NEURALGIA
  8. VITAMIN B-12 [Concomitant]
     Route: 030

REACTIONS (4)
  - FATIGUE [None]
  - FEELING COLD [None]
  - GAIT DISTURBANCE [None]
  - INFLUENZA LIKE ILLNESS [None]
